FAERS Safety Report 10908841 (Version 1)
Quarter: 2015Q1

REPORT INFORMATION
  Report Type: Spontaneous
  Country: GB (occurrence: GB)
  Receive Date: 20150312
  Receipt Date: 20150312
  Transmission Date: 20150721
  Serious: Yes (Life-Threatening)
  Sender: FDA-Public Use
  Company Number: GB-PFIZER INC-2015084246

PATIENT
  Age: 29 Year
  Sex: Male
  Weight: 90 kg

DRUGS (5)
  1. CHAMPIX [Suspect]
     Active Substance: VARENICLINE TARTRATE
     Dosage: 1 MG, UNK (25 TABLETS)
     Route: 048
     Dates: start: 20150214, end: 20150214
  2. IBUPROFEN. [Suspect]
     Active Substance: IBUPROFEN
     Dosage: UNK
  3. CHAMPIX [Suspect]
     Active Substance: VARENICLINE TARTRATE
     Indication: SMOKING CESSATION THERAPY
     Dosage: 1 MG, UNK
     Route: 048
     Dates: start: 20150112, end: 2015
  4. CHAMPIX [Suspect]
     Active Substance: VARENICLINE TARTRATE
     Dosage: 1MG TWICE A DAY
     Route: 048
     Dates: start: 2015, end: 20150212
  5. PARACETAMOL [Suspect]
     Active Substance: ACETAMINOPHEN
     Dosage: UNK

REACTIONS (7)
  - Nausea [Recovering/Resolving]
  - Insomnia [Unknown]
  - Withdrawal syndrome [Unknown]
  - Suicidal ideation [Recovering/Resolving]
  - Vomiting [Recovering/Resolving]
  - Depressed mood [Unknown]
  - Intentional overdose [Recovering/Resolving]

NARRATIVE: CASE EVENT DATE: 2015
